FAERS Safety Report 8472986-X (Version None)
Quarter: 2012Q2

REPORT INFORMATION
  Report Type: 
  Country: None (occurrence: None)
  Receive Date: 20120627
  Receipt Date: 20120612
  Transmission Date: 20120825
  Serious: No
  Sender: FDA-Public Use
  Company Number: US-ASTRAZENECA-2012SE39584

PATIENT
  Age: 65 Year
  Sex: Female

DRUGS (13)
  1. VITAMIN D [Concomitant]
  2. VITAMIN B-12 [Concomitant]
  3. CITALOPRAM HYDROBROMIDE [Concomitant]
     Indication: ANTIDEPRESSANT THERAPY
  4. DIOVAN [Concomitant]
     Indication: HYPERTENSION
  5. CELEBREX [Concomitant]
     Indication: ARTHRITIS
  6. NEXIUM [Suspect]
     Route: 048
  7. CALCIUM [Concomitant]
  8. DILTIAZEM HYDROCHOLORIDE [Concomitant]
     Indication: HYPERTENSION
  9. GENERIC LIPITOR [Concomitant]
     Indication: BLOOD CHOLESTEROL
  10. CELEBREX [Concomitant]
     Indication: ANTIINFLAMMATORY THERAPY
  11. ASPIRIN [Concomitant]
  12. NEXIUM [Suspect]
     Indication: GASTROOESOPHAGEAL REFLUX DISEASE
     Route: 048
  13. MULTI-VITAMINS [Concomitant]

REACTIONS (4)
  - COUGH [None]
  - OFF LABEL USE [None]
  - INTENTIONAL DRUG MISUSE [None]
  - DYSPEPSIA [None]
